FAERS Safety Report 5377064-4 (Version None)
Quarter: 2007Q2

REPORT INFORMATION
  Report Type: 
  Country: None (occurrence: None)
  Receive Date: 20070628
  Receipt Date: 20070628
  Transmission Date: 20071010
  Serious: Yes (Other)
  Sender: FDA-Public Use
  Company Number: None

PATIENT
  Sex: Female

DRUGS (8)
  1. REVLIMID [Suspect]
     Indication: MULTIPLE MYELOMA
     Dosage: 15MG DAILY FOR 14D Q28D PO
     Route: 048
  2. TEMAZEPAM [Concomitant]
  3. FAMOTIDINE [Concomitant]
  4. DEXAMETHASONE [Concomitant]
  5. LORAZEPAM [Concomitant]
  6. LOVASTATIN [Concomitant]
  7. MORPHINE [Concomitant]
  8. METOCLOPRAMIDE [Concomitant]

REACTIONS (1)
  - BLOOD CREATININE INCREASED [None]
